FAERS Safety Report 14666633 (Version 1)
Quarter: 2018Q1

REPORT INFORMATION
  Report Type: Spontaneous
  Country: FR (occurrence: FR)
  Receive Date: 20180322
  Receipt Date: 20180322
  Transmission Date: 20180509
  Serious: Yes (Other)
  Sender: FDA-Public Use
  Company Number: FR-MERCK KGAA-2044255

PATIENT
  Age: 50 Year
  Sex: Female

DRUGS (1)
  1. NOVOTHYROX [Suspect]
     Active Substance: LEVOTHYROXINE SODIUM
     Indication: PRODUCT USED FOR UNKNOWN INDICATION

REACTIONS (22)
  - Dizziness [None]
  - Lethargy [None]
  - Arthralgia [None]
  - Crying [None]
  - Weight decreased [None]
  - Suicidal ideation [None]
  - Suicide attempt [None]
  - Musculoskeletal stiffness [None]
  - Disorientation [None]
  - Pain [None]
  - Decreased appetite [None]
  - Blood thyroid stimulating hormone increased [None]
  - Alopecia [None]
  - Tachycardia [None]
  - Negative thoughts [None]
  - Amnesia [None]
  - Loss of personal independence in daily activities [None]
  - Headache [None]
  - Insomnia [None]
  - Fatigue [None]
  - Blood thyroid stimulating hormone decreased [None]
  - Thyroxine free increased [None]

NARRATIVE: CASE EVENT DATE: 20170206
